FAERS Safety Report 8138752-X (Version None)
Quarter: 2012Q1

REPORT INFORMATION
  Report Type: 
  Country: None (occurrence: None)
  Receive Date: 20120215
  Receipt Date: 20120206
  Transmission Date: 20120608
  Serious: Yes (Hospitalization)
  Sender: FDA-Public Use
  Company Number: FR-GLAXOSMITHKLINE-B0760320A

PATIENT
  Sex: Female
  Weight: 45 kg

DRUGS (1)
  1. ARIXTRA [Suspect]
     Indication: THROMBOPHLEBITIS
     Dosage: 7.5MG PER DAY
     Route: 058
     Dates: start: 20111014, end: 20111025

REACTIONS (3)
  - SHOCK HAEMORRHAGIC [None]
  - HAEMATOMA [None]
  - OVERDOSE [None]
